FAERS Safety Report 21637990 (Version 1)
Quarter: 2022Q4

REPORT INFORMATION
  Report Type: Spontaneous
  Country: CL (occurrence: None)
  Receive Date: 20221124
  Receipt Date: 20221124
  Transmission Date: 20230113
  Serious: Yes (Other)
  Sender: FDA-Public Use
  Company Number: CL-ROCHE-3224529

PATIENT
  Sex: Female

DRUGS (1)
  1. HERCEPTIN [Suspect]
     Active Substance: TRASTUZUMAB
     Indication: HER2 positive breast cancer
     Dosage: DOSE AND FREQUENCY WERE NOT REPORTED
     Route: 065

REACTIONS (1)
  - Non-Hodgkin^s lymphoma [Unknown]
